FAERS Safety Report 6403945-6 (Version None)
Quarter: 2009Q4

REPORT INFORMATION
  Report Type: 
  Country: None (occurrence: None)
  Receive Date: 20091016
  Receipt Date: 20090706
  Transmission Date: 20100525
  Serious: No
  Sender: FDA-Public Use
  Company Number: US-ALEXION-A200900551

PATIENT
  Sex: Male

DRUGS (7)
  1. SOLIRIS [Suspect]
     Indication: PAROXYSMAL NOCTURNAL HAEMOGLOBINURIA
     Dosage: 600 MG, QW
     Route: 042
     Dates: start: 20090512, end: 20090604
  2. SOLIRIS [Suspect]
     Dosage: 900 MG, Q2W
     Route: 042
     Dates: start: 20090611
  3. OMEPRAZOLE [Concomitant]
     Dosage: 20 MG, UNK
     Route: 048
  4. LISINOPRIL [Concomitant]
     Dosage: 40 MG, QD
     Route: 048
  5. NIACIN [Concomitant]
     Dosage: UNK
     Route: 048
  6. FISH OIL [Concomitant]
     Dosage: UNK
     Route: 048
  7. SUCRALFATE [Concomitant]
     Dosage: UNK
     Route: 048

REACTIONS (1)
  - PLATELET COUNT DECREASED [None]
